FAERS Safety Report 4452317-2 (Version None)
Quarter: 2004Q3

REPORT INFORMATION
  Report Type: 
  Country: None (occurrence: None)
  Receive Date: 20040917
  Receipt Date: 20040414
  Transmission Date: 20050211
  Serious: Yes (Other)
  Sender: FDA-Public Use
  Company Number: DE-ROCHE-364550

PATIENT
  Age: 31 Year
  Sex: Male
  Weight: 82 kg

DRUGS (2)
  1. ROCEPHIN [Suspect]
     Indication: BORRELIA INFECTION
     Route: 042
     Dates: start: 20040215, end: 20040215
  2. ROCEPHIN [Suspect]
     Route: 042

REACTIONS (4)
  - BREAST PAIN [None]
  - NECK PAIN [None]
  - SUPRAVENTRICULAR EXTRASYSTOLES [None]
  - VENTRICULAR EXTRASYSTOLES [None]
